FAERS Safety Report 6816260-3 (Version None)
Quarter: 2010Q3

REPORT INFORMATION
  Report Type: 
  Country: None (occurrence: None)
  Receive Date: 20100705
  Receipt Date: 20100623
  Transmission Date: 20110219
  Serious: Yes (Hospitalization, Other)
  Sender: FDA-Public Use
  Company Number: JP-PFIZER INC-2008154831

PATIENT
  Age: 58 Year
  Sex: Male
  Weight: 68.4 kg

DRUGS (10)
  1. SUNITINIB MALATE [Suspect]
     Indication: RENAL CELL CARCINOMA
     Dosage: 50 MG, 1X/DAY
     Route: 048
     Dates: start: 20080709, end: 20080805
  2. SUNITINIB MALATE [Suspect]
     Dosage: 50 MG, 1X/DAY
     Route: 048
     Dates: start: 20080819, end: 20080915
  3. SUNITINIB MALATE [Suspect]
     Dosage: 50 MG, 1X/DAY
     Route: 048
     Dates: start: 20080930, end: 20081027
  4. SUNITINIB MALATE [Suspect]
     Dosage: 50 MG, 1X/DAY
     Route: 048
     Dates: start: 20081111, end: 20081128
  5. DECADRON [Concomitant]
     Dosage: UNK
     Route: 048
  6. BLOPRESS [Concomitant]
     Indication: HYPERTENSION
     Dosage: UNK
     Route: 048
  7. ADALAT [Concomitant]
     Indication: HYPERTENSION
     Dosage: UNK
     Route: 048
  8. TRANSAMIN [Concomitant]
     Route: 048
     Dates: end: 20080712
  9. ADONA [Concomitant]
     Route: 048
     Dates: end: 20080712
  10. HYDANTOL [Concomitant]
     Route: 048
     Dates: end: 20080728

REACTIONS (4)
  - COLITIS ULCERATIVE [None]
  - DIARRHOEA [None]
  - HYPERTENSION [None]
  - SKIN DISORDER [None]
